FAERS Safety Report 10313239 (Version 1)
Quarter: 2014Q3

REPORT INFORMATION
  Report Type: Spontaneous
  Country: GB (occurrence: None)
  Receive Date: 20140716
  Receipt Date: 20140716
  Transmission Date: 20150326
  Serious: Yes (Other)
  Sender: FDA-Public Use
  Company Number: GB-H14001-14-00194

PATIENT
  Age: 67 Year
  Sex: Female

DRUGS (14)
  1. CLARITHROMYCIN. [Concomitant]
     Active Substance: CLARITHROMYCIN
  2. PHENOXYMETHLPENICILLIN [Concomitant]
  3. ASPIRIN (ACETYLSALICYLIC ACID) [Concomitant]
     Active Substance: ASPIRIN
  4. OMEPRAZOLE. [Concomitant]
     Active Substance: OMEPRAZOLE
  5. ATENOLOL. [Concomitant]
     Active Substance: ATENOLOL
  6. ATORVASTATIN [Concomitant]
     Active Substance: ATORVASTATIN
  7. LOSARTAN [Concomitant]
     Active Substance: LOSARTAN
  8. AMOXICILLIN. [Concomitant]
     Active Substance: AMOXICILLIN
  9. GABAPENTIN. [Concomitant]
     Active Substance: GABAPENTIN
  10. HORMONE REPLACEMENT THERAPY (HORMONES) [Concomitant]
  11. ZAPAIN (PANADEINE CO) (CODEINE PHOSPHATE, PARACETAMOL) [Concomitant]
  12. LEVOFLOXACIN (LEVOFLOXACIN) [Suspect]
     Active Substance: LEVOFLOXACIN
     Indication: PRODUCT USED FOR UNKNOWN INDICATION
  13. CORSODYL (CHLORHEXIDINE GLUCONATE) [Concomitant]
  14. RANITIDINE [Concomitant]
     Active Substance: RANITIDINE\RANITIDINE HYDROCHLORIDE

REACTIONS (2)
  - Mouth swelling [None]
  - Oral discomfort [None]

NARRATIVE: CASE EVENT DATE: 20140624
